FAERS Safety Report 5611411-0 (Version None)
Quarter: 2008Q1

REPORT INFORMATION
  Report Type: 
  Country: None (occurrence: None)
  Receive Date: 20080201
  Receipt Date: 20071105
  Transmission Date: 20080703
  Serious: Yes (Hospitalization)
  Sender: FDA-Public Use
  Company Number: US-GENENTECH-250882

PATIENT
  Sex: Male
  Weight: 58.05 kg

DRUGS (8)
  1. BLINDED PLACEBO [Suspect]
     Indication: DERMATOMYOSITIS
     Dosage: 1000 MG, UNK
     Route: 042
     Dates: start: 20061219
  2. BLINDED RITUXIMAB [Suspect]
     Indication: DERMATOMYOSITIS
     Dosage: 1000 MG, UNK
     Route: 042
     Dates: start: 20061219
  3. RITUXAN [Suspect]
     Indication: DERMATOMYOSITIS
     Dosage: UNK UNK, UNKNOWN
     Route: 065
  4. AMBIEN [Concomitant]
     Indication: DRUG USE FOR UNKNOWN INDICATION
     Dosage: 10 MG, UNK
     Dates: start: 20070829
  5. REMERON [Concomitant]
     Indication: DRUG USE FOR UNKNOWN INDICATION
     Dosage: 30 MEQ, UNK
     Dates: start: 20070829
  6. PREDNISONE TAB [Concomitant]
     Indication: DRUG USE FOR UNKNOWN INDICATION
     Dosage: 30 MG, UNK
     Dates: start: 20070829
  7. BONIVA [Concomitant]
     Indication: DRUG USE FOR UNKNOWN INDICATION
     Dosage: 150 MG, UNK
     Dates: start: 20070914
  8. VITAMIN TAB [Concomitant]
     Indication: DRUG USE FOR UNKNOWN INDICATION

REACTIONS (1)
  - CARDIAC FAILURE CONGESTIVE [None]
